FAERS Safety Report 7794300-5 (Version None)
Quarter: 2011Q4

REPORT INFORMATION
  Report Type: 
  Country: None (occurrence: None)
  Receive Date: 20111004
  Receipt Date: 20110922
  Transmission Date: 20120403
  Serious: Yes (Hospitalization, Other)
  Sender: FDA-Public Use
  Company Number: US-BAYER-2011-009804

PATIENT
  Age: 45 Year
  Sex: Female
  Weight: 90.703 kg

DRUGS (2)
  1. YASMIN [Suspect]
     Indication: PREMENSTRUAL SYNDROME
  2. YASMIN [Suspect]
     Indication: CONTRACEPTION
     Dosage: UNK
     Dates: start: 20070801, end: 20070921

REACTIONS (8)
  - PULMONARY EMBOLISM [None]
  - EMOTIONAL DISTRESS [None]
  - PAIN [None]
  - MENTAL DISORDER [None]
  - FEAR [None]
  - HYPOXIA [None]
  - ANXIETY [None]
  - SYNCOPE [None]
